FAERS Safety Report 13637990 (Version 2)
Quarter: 2017Q3

REPORT INFORMATION
  Report Type: Spontaneous
  Country: JP (occurrence: JP)
  Receive Date: 20170609
  Receipt Date: 20170728
  Transmission Date: 20171127
  Serious: Yes (Death, Other)
  Sender: FDA-Public Use
  Company Number: JP-BAYER-2017-102020

PATIENT
  Age: 59 Year
  Sex: Male

DRUGS (5)
  1. STIVARGA [Suspect]
     Active Substance: REGORAFENIB
     Indication: RECTAL CANCER
     Dosage: 80 MG, QD
     Route: 048
     Dates: start: 201312
  2. STIVARGA [Suspect]
     Active Substance: REGORAFENIB
     Indication: RECTAL CANCER
     Dosage: 120 MG, QD
     Route: 048
     Dates: start: 2013, end: 2013
  3. STIVARGA [Suspect]
     Active Substance: REGORAFENIB
     Indication: RECTAL CANCER
     Dosage: 160 MG, QD
     Route: 048
     Dates: start: 201306, end: 2013
  4. STIVARGA [Suspect]
     Active Substance: REGORAFENIB
     Indication: RECTAL CANCER
     Dosage: 40 MG, QD
     Route: 048
     Dates: start: 201308, end: 2013
  5. STIVARGA [Suspect]
     Active Substance: REGORAFENIB
     Indication: RECTAL CANCER
     Dosage: 80 MG, QD
     Route: 048
     Dates: start: 2013, end: 2013

REACTIONS (11)
  - Lymphadenopathy [None]
  - Palmar-plantar erythrodysaesthesia syndrome [None]
  - Proteinuria [None]
  - Hypertension [None]
  - Hydronephrosis [None]
  - Lymphangiosis carcinomatosa [None]
  - Pain [None]
  - Metastases to spine [None]
  - Rectal cancer [Fatal]
  - Metastases to bone [None]
  - Metastases to lung [None]

NARRATIVE: CASE EVENT DATE: 2013
